FAERS Safety Report 16889751 (Version 1)
Quarter: 2019Q4

REPORT INFORMATION
  Report Type: Spontaneous
  Country: US (occurrence: US)
  Receive Date: 20191007
  Receipt Date: 20191007
  Transmission Date: 20200122
  Serious: No
  Sender: FDA-Public Use
  Company Number: US-AMGEN INC.-USASP2019161883

PATIENT
  Age: 49 Year
  Sex: Female

DRUGS (1)
  1. AIMOVIG [Suspect]
     Active Substance: ERENUMAB-AOOE
     Indication: MIGRAINE
     Dosage: 70 MILLIGRAM
     Route: 065
     Dates: start: 201909, end: 201909

REACTIONS (11)
  - Migraine [Recovered/Resolved]
  - Serum serotonin increased [Unknown]
  - Muscular weakness [Not Recovered/Not Resolved]
  - Nausea [Unknown]
  - Rash vesicular [Not Recovered/Not Resolved]
  - Dyspnoea [Unknown]
  - Neck pain [Unknown]
  - Swelling face [Not Recovered/Not Resolved]
  - Musculoskeletal stiffness [Unknown]
  - Feeling abnormal [Not Recovered/Not Resolved]
  - Dyspepsia [Unknown]

NARRATIVE: CASE EVENT DATE: 201909
